FAERS Safety Report 8379647-6 (Version None)
Quarter: 2012Q2

REPORT INFORMATION
  Report Type: 
  Country: None (occurrence: None)
  Receive Date: 20120523
  Receipt Date: 20120518
  Transmission Date: 20120825
  Serious: No
  Sender: FDA-Public Use
  Company Number: PHHY2012JP043819

PATIENT
  Age: 70 Year

DRUGS (1)
  1. TASIGNA [Suspect]
     Indication: CHRONIC MYELOID LEUKAEMIA
     Route: 048

REACTIONS (3)
  - DRUG LEVEL INCREASED [None]
  - LABELLED DRUG-FOOD INTERACTION MEDICATION ERROR [None]
  - DYSPHAGIA [None]
